FAERS Safety Report 23075081 (Version 1)
Quarter: 2023Q4

REPORT INFORMATION
  Report Type: Report from Study
  Country: ES (occurrence: None)
  Receive Date: 20231017
  Receipt Date: 20231017
  Transmission Date: 20240110
  Serious: Yes (Other)
  Sender: FDA-Public Use
  Company Number: 2023A216150

PATIENT
  Age: 63 Year
  Sex: Female

DRUGS (1)
  1. FASENRA [Suspect]
     Active Substance: BENRALIZUMAB
     Indication: Asthma
     Dosage: EVERY EIGHT WEEKS
     Route: 058

REACTIONS (3)
  - Spinal column injury [Unknown]
  - Myalgia [Not Recovered/Not Resolved]
  - Tendon pain [Not Recovered/Not Resolved]
